FAERS Safety Report 6920369-3 (Version None)
Quarter: 2010Q3

REPORT INFORMATION
  Report Type: 
  Country: None (occurrence: None)
  Receive Date: 20100803
  Receipt Date: 20100407
  Transmission Date: 20110219
  Serious: Yes (Other)
  Sender: FDA-Public Use
  Company Number: 2010SP020503

PATIENT
  Age: 72 Year
  Sex: Male

DRUGS (2)
  1. INTRON A [Suspect]
     Indication: BLADDER CANCER
     Dates: end: 20100401
  2. TICE BCG [Suspect]
     Indication: BLADDER CANCER
     Dates: end: 20100401

REACTIONS (1)
  - HAEMORRHAGE URINARY TRACT [None]
